FAERS Safety Report 13507188 (Version 1)
Quarter: 2017Q2

REPORT INFORMATION
  Report Type: Spontaneous
  Country: US (occurrence: US)
  Receive Date: 20170503
  Receipt Date: 20170503
  Transmission Date: 20170830
  Serious: No
  Sender: FDA-Public Use
  Company Number: US-TEVA-710537USA

PATIENT
  Age: 91 Year
  Sex: Female
  Weight: 62.2 kg

DRUGS (1)
  1. NICOTINE POLACRILEX [Suspect]
     Active Substance: NICOTINE
     Route: 048

REACTIONS (1)
  - Dysgeusia [Not Recovered/Not Resolved]
